FAERS Safety Report 9449467 (Version 1)
Quarter: 2013Q3

REPORT INFORMATION
  Report Type: Spontaneous
  Country: US (occurrence: US)
  Receive Date: 20130809
  Receipt Date: 20130809
  Transmission Date: 20140515
  Serious: Yes (Hospitalization)
  Sender: FDA-Public Use
  Company Number: US-BIOGENIDEC-2013BI072131

PATIENT
  Sex: Female

DRUGS (1)
  1. AVONEX [Suspect]
     Indication: MULTIPLE SCLEROSIS
     Route: 030
     Dates: start: 20070709

REACTIONS (6)
  - Trigeminal neuralgia [Unknown]
  - Frustration [Unknown]
  - Fall [Recovered/Resolved]
  - Pain [Unknown]
  - Depressed mood [Unknown]
  - Rhinorrhoea [Unknown]
